FAERS Safety Report 9241696 (Version 1)
Quarter: 2013Q2

REPORT INFORMATION
  Report Type: Spontaneous
  Country: US (occurrence: US)
  Receive Date: 20130419
  Receipt Date: 20130419
  Transmission Date: 20140414
  Serious: Yes (Other)
  Sender: FDA-Public Use
  Company Number: US-SHIRE-ALL1-2013-02462

PATIENT
  Age: 7 Year
  Sex: Female

DRUGS (2)
  1. INTUNIV [Suspect]
     Indication: ATTENTION DEFICIT/HYPERACTIVITY DISORDER
     Dosage: UNK UNK, UNKNOWN
     Route: 065
  2. INTUNIV [Suspect]
     Dosage: UNK UNK, UNKNOWN
     Route: 065
     Dates: start: 20130413

REACTIONS (1)
  - Suicidal ideation [Recovered/Resolved]
